FAERS Safety Report 21637563 (Version 1)
Quarter: 2022Q4

REPORT INFORMATION
  Report Type: Report from Study
  Country: US (occurrence: US)
  Receive Date: 20221124
  Receipt Date: 20221124
  Transmission Date: 20230113
  Serious: No
  Sender: FDA-Public Use
  Company Number: US-ABBVIE-4160369

PATIENT
  Sex: Male

DRUGS (3)
  1. HUMIRA [Suspect]
     Active Substance: ADALIMUMAB
     Indication: Colitis ulcerative
     Dosage: HUMIRA 80MG/0.8ML CF
     Route: 058
  2. Pfizer/BioNtech [Concomitant]
     Indication: COVID-19 immunisation
     Dosage: 1ST
     Route: 030
     Dates: start: 20210813, end: 20210813
  3. Pfizer/BioNtech [Concomitant]
     Indication: COVID-19 immunisation
     Dosage: 2ND
     Route: 030
     Dates: start: 20211231, end: 20211231

REACTIONS (2)
  - Gastric disorder [Unknown]
  - Mental disorder [Unknown]
